FAERS Safety Report 18171113 (Version 1)
Quarter: 2020Q3

REPORT INFORMATION
  Report Type: Spontaneous
  Country: US (occurrence: US)
  Receive Date: 20200819
  Receipt Date: 20200819
  Transmission Date: 20201103
  Serious: No
  Sender: FDA-Public Use
  Company Number: US-OREXO US, INC.-ORE201909-000095

PATIENT
  Sex: Male

DRUGS (3)
  1. VITAMIN B [Concomitant]
     Active Substance: VITAMIN B
  2. VITAMIN K [Concomitant]
     Active Substance: PHYTONADIONE
  3. ZUBSOLV [Suspect]
     Active Substance: BUPRENORPHINE HYDROCHLORIDE\NALOXONE HYDROCHLORIDE
     Indication: PAIN
     Dates: start: 2019

REACTIONS (4)
  - Nervousness [Unknown]
  - Anxiety [Unknown]
  - Product use in unapproved indication [Unknown]
  - Hunger [Unknown]
